FAERS Safety Report 7815072-1 (Version None)
Quarter: 2011Q4

REPORT INFORMATION
  Report Type: 
  Country: None (occurrence: None)
  Receive Date: 20111013
  Receipt Date: 20111013
  Transmission Date: 20120403
  Serious: No
  Sender: FDA-Public Use
  Company Number: None

PATIENT
  Sex: Female
  Weight: 56.6996 kg

DRUGS (1)
  1. RECLAST [Suspect]
     Indication: OSTEOPOROSIS
     Dates: start: 20110411

REACTIONS (4)
  - BONE PAIN [None]
  - DISCOMFORT [None]
  - ASTHENIA [None]
  - ACTIVITIES OF DAILY LIVING IMPAIRED [None]
